FAERS Safety Report 21738720 (Version 1)
Quarter: 2022Q4

REPORT INFORMATION
  Report Type: Spontaneous
  Country: US (occurrence: US)
  Receive Date: 20221216
  Receipt Date: 20221216
  Transmission Date: 20230113
  Serious: No
  Sender: FDA-Public Use
  Company Number: US-TAKEDA-2022TUS093919

PATIENT
  Sex: Female
  Weight: 19.048 kg

DRUGS (2)
  1. MOTEGRITY [Suspect]
     Active Substance: PRUCALOPRIDE SUCCINATE
     Indication: Intestinal obstruction
     Dosage: 2 MILLIGRAM, QD
     Route: 065
  2. MIRALAX [Concomitant]
     Active Substance: POLYETHYLENE GLYCOL 3350
     Dosage: UNK
     Route: 065

REACTIONS (3)
  - Off label use [Unknown]
  - Product dose omission issue [Unknown]
  - No adverse event [Unknown]
